FAERS Safety Report 16315476 (Version 4)
Quarter: 2021Q3

REPORT INFORMATION
  Report Type: Report from Study
  Country: US (occurrence: US)
  Receive Date: 20190515
  Receipt Date: 20210928
  Transmission Date: 20211014
  Serious: No
  Sender: FDA-Public Use
  Company Number: US-SA-2019SA125122

PATIENT
  Age: 59 Year
  Sex: Female

DRUGS (3)
  1. DUPILUMAB [Suspect]
     Active Substance: DUPILUMAB
     Indication: DERMATITIS ATOPIC
     Dosage: 300 MG, QOW
     Route: 058
     Dates: start: 20190424
  2. DUPILUMAB [Suspect]
     Active Substance: DUPILUMAB
     Indication: PRURIGO
     Dosage: 600 MG, 1X
     Route: 058
     Dates: start: 20190702, end: 20190702
  3. DUPILUMAB [Suspect]
     Active Substance: DUPILUMAB
     Indication: RASH PRURITIC
     Dosage: 300 MG, QOW
     Route: 058
     Dates: start: 2019, end: 202002

REACTIONS (7)
  - Pruritus [Unknown]
  - Incorrect dose administered [Unknown]
  - Product use in unapproved indication [Unknown]
  - Inappropriate schedule of product administration [Unknown]
  - Lacrimation increased [Unknown]
  - Wrong technique in product usage process [Unknown]
  - Drug ineffective [Unknown]

NARRATIVE: CASE EVENT DATE: 20190424
